FAERS Safety Report 5064496-7 (Version None)
Quarter: 2006Q3

REPORT INFORMATION
  Report Type: 
  Country: None (occurrence: None)
  Receive Date: 20060726
  Receipt Date: 20060712
  Transmission Date: 20061208
  Serious: Yes (Other)
  Sender: FDA-Public Use
  Company Number: 2006086840

PATIENT
  Sex: Male

DRUGS (1)
  1. TOLTERODINE TARTRATE [Suspect]
     Indication: POLLAKIURIA
     Dates: start: 20060101, end: 20060706

REACTIONS (10)
  - ABDOMINAL PAIN [None]
  - BLADDER CANCER [None]
  - BURNING SENSATION [None]
  - DRY MOUTH [None]
  - HEADACHE [None]
  - METASTASES TO BONE [None]
  - METASTASES TO GASTROINTESTINAL TRACT [None]
  - METASTASIS [None]
  - POLLAKIURIA [None]
  - RECURRENT CANCER [None]
